FAERS Safety Report 11684131 (Version 2)
Quarter: 2016Q2

REPORT INFORMATION
  Report Type: Spontaneous
  Country: US (occurrence: US)
  Receive Date: 20151029
  Receipt Date: 20160407
  Transmission Date: 20160815
  Serious: Yes (Death, Hospitalization)
  Sender: FDA-Public Use
  Company Number: US-ENDO PHARMACEUTICALS INC.-2015-003674

PATIENT
  Age: 55 Year
  Sex: Male

DRUGS (1)
  1. TESTIM [Suspect]
     Active Substance: TESTOSTERONE
     Indication: ANDROGEN REPLACEMENT THERAPY
     Route: 062
     Dates: start: 2008, end: 20120114

REACTIONS (9)
  - Coronary artery disease [Unknown]
  - Seizure [Unknown]
  - Myocardial infarction [Unknown]
  - Multiple organ dysfunction syndrome [Unknown]
  - Respiratory failure [Unknown]
  - Hypotension [Unknown]
  - Cerebral infarction [Fatal]
  - Cardio-respiratory arrest [Fatal]
  - Encephalopathy [Unknown]

NARRATIVE: CASE EVENT DATE: 2010
